FAERS Safety Report 5258122-1 (Version None)
Quarter: 2007Q1

REPORT INFORMATION
  Report Type: 
  Country: None (occurrence: None)
  Receive Date: 20070307
  Receipt Date: 20070224
  Transmission Date: 20070707
  Serious: Yes (Hospitalization, Other)
  Sender: FDA-Public Use
  Company Number: US-PFIZER INC-2007015071

PATIENT
  Sex: Female
  Weight: 64.9 kg

DRUGS (8)
  1. CHANTIX [Suspect]
     Indication: SMOKING CESSATION THERAPY
  2. KLONOPIN [Concomitant]
  3. LEXAPRO [Concomitant]
  4. ADVAIR DISKUS 100/50 [Concomitant]
  5. CALCIUM [Concomitant]
  6. ONE-A-DAY [Concomitant]
  7. LISINOPRIL [Concomitant]
  8. XANAX [Concomitant]

REACTIONS (3)
  - BODY HEIGHT DECREASED [None]
  - DYSPEPSIA [None]
  - LUNG NEOPLASM [None]
